FAERS Safety Report 10672701 (Version 2)
Quarter: 2015Q1

REPORT INFORMATION
  Report Type: Spontaneous
  Country: US (occurrence: US)
  Receive Date: 20141223
  Receipt Date: 20150113
  Transmission Date: 20150720
  Serious: Yes (Other)
  Sender: FDA-Public Use
  Company Number: US-TEVA-530838USA

PATIENT
  Age: 18 Year

DRUGS (1)
  1. NALTREXONE HYDROCHLORIDE TABLET 50MG [Suspect]
     Active Substance: NALTREXONE HYDROCHLORIDE
     Route: 065

REACTIONS (6)
  - Ileal stenosis [Unknown]
  - Injection site reaction [Unknown]
  - Drug ineffective [Unknown]
  - Musculoskeletal pain [Unknown]
  - Arthralgia [Unknown]
  - Neck pain [Unknown]
